FAERS Safety Report 9349242 (Version 2)
Quarter: 2013Q3

REPORT INFORMATION
  Report Type: Spontaneous
  Country: US (occurrence: US)
  Receive Date: 20130614
  Receipt Date: 20130715
  Transmission Date: 20140515
  Serious: Yes (Other)
  Sender: FDA-Public Use
  Company Number: US-JNJFOC-20130603296

PATIENT
  Age: 53 Year
  Sex: Female
  Weight: 122.47 kg

DRUGS (9)
  1. XARELTO [Suspect]
     Indication: DEEP VEIN THROMBOSIS
     Route: 048
     Dates: start: 20130530, end: 20130602
  2. HEPARIN [Suspect]
     Indication: PRODUCT USED FOR UNKNOWN INDICATION
     Dosage: 1200 U/HOUR
     Route: 065
     Dates: start: 20130529, end: 20130531
  3. SOLUMEDROL (METHYLPREDNISOLONE SODIUM SUCCINATE) [Concomitant]
     Route: 065
     Dates: start: 20130531, end: 20130531
  4. SOLUMEDROL (METHYLPREDNISOLONE SODIUM SUCCINATE) [Concomitant]
     Route: 065
     Dates: start: 20130530, end: 20130530
  5. LEVEMIR [Concomitant]
     Indication: BLOOD GLUCOSE INCREASED
     Route: 065
  6. HUMALOG [Concomitant]
     Indication: BLOOD GLUCOSE INCREASED
     Route: 065
  7. ALBUTEROL [Concomitant]
     Indication: DYSPNOEA
     Route: 065
  8. POTASSIUM [Concomitant]
     Indication: BLOOD POTASSIUM DECREASED
     Route: 048
     Dates: start: 20130531, end: 20130531
  9. POTASSIUM [Concomitant]
     Indication: BLOOD POTASSIUM DECREASED
     Route: 048
     Dates: start: 20130531, end: 20130531

REACTIONS (13)
  - Epistaxis [Not Recovered/Not Resolved]
  - Contusion [Not Recovered/Not Resolved]
  - Abdominal pain upper [Not Recovered/Not Resolved]
  - Activated partial thromboplastin time prolonged [Unknown]
  - International normalised ratio increased [Unknown]
  - Blood creatinine abnormal [Unknown]
  - Haemorrhage [Unknown]
  - Blood glucose increased [Unknown]
  - Hepatic steatosis [Unknown]
  - Blood potassium decreased [Unknown]
  - Abdominal discomfort [Not Recovered/Not Resolved]
  - Pain [Unknown]
  - Drug dose omission [Unknown]
